FAERS Safety Report 13732300 (Version 1)
Quarter: 2017Q3

REPORT INFORMATION
  Report Type: Spontaneous
  Country: US (occurrence: US)
  Receive Date: 20170707
  Receipt Date: 20170707
  Transmission Date: 20171127
  Serious: Yes (Hospitalization, Other)
  Sender: FDA-Public Use
  Company Number: US-SA-2017SA117896

PATIENT
  Age: 42 Year
  Sex: Female
  Weight: 74 kg

DRUGS (2)
  1. LOVENOX [Suspect]
     Active Substance: ENOXAPARIN SODIUM
     Indication: PULMONARY EMBOLISM
     Route: 065
  2. XARELTO [Suspect]
     Active Substance: RIVAROXABAN
     Indication: PULMONARY EMBOLISM
     Route: 048

REACTIONS (5)
  - Blood bilirubin increased [Unknown]
  - Abdominal pain upper [Unknown]
  - Transaminases increased [Unknown]
  - Haematuria [Unknown]
  - Pruritus generalised [Unknown]
